FAERS Safety Report 8694024 (Version 10)
Quarter: 2014Q2

REPORT INFORMATION
  Report Type: Spontaneous
  Country: JP (occurrence: JP)
  Receive Date: 20120731
  Receipt Date: 20140605
  Transmission Date: 20141212
  Serious: Yes (Hospitalization, Other)
  Sender: FDA-Public Use
  Company Number: PHHY2012JP064559

PATIENT
  Age: 55 Year
  Sex: Female
  Weight: 55 kg

DRUGS (19)
  1. AFINITOR [Suspect]
     Indication: PANCREATIC NEUROENDOCRINE TUMOUR
     Dosage: 10 MG DAILY IN TWO DIVIDED DOSES
     Route: 048
     Dates: start: 20111228, end: 20120402
  2. AFINITOR [Suspect]
     Dosage: 5 MG, DAILY
     Route: 048
     Dates: start: 20120403, end: 20130125
  3. AFINITOR [Suspect]
     Dosage: 5 MG, QOD
     Route: 048
     Dates: start: 20130126, end: 20130516
  4. MEVALOTIN [Concomitant]
     Dosage: 10 MG, UNK
     Route: 048
  5. SENNOSIDE [Concomitant]
     Indication: CONSTIPATION
     Dosage: 12 MG, UNK
     Route: 048
     Dates: start: 20130429, end: 20130430
  6. CALONAL [Concomitant]
     Indication: PROPHYLAXIS
     Route: 048
     Dates: start: 20121218
  7. CALONAL [Concomitant]
     Dosage: 1200 MG, UNK
     Route: 048
     Dates: end: 20130308
  8. ASTOMIN [Concomitant]
     Dosage: 10 MG, UNK
     Route: 048
     Dates: start: 20130322, end: 20130521
  9. PRIMPERAN [Concomitant]
     Indication: DECREASED APPETITE
     Dosage: 15 MG, UNK
     Route: 048
     Dates: start: 20130501, end: 20130516
  10. PRIMPERAN [Concomitant]
     Dates: start: 20130427, end: 20130521
  11. KANAMYCIN [Concomitant]
     Indication: PROPHYLAXIS
     Dosage: 6 DF, UNK
     Route: 048
     Dates: start: 20130502
  12. BIOFERMIN R [Concomitant]
     Indication: PROPHYLAXIS
     Dosage: 3 DF, UNK
     Route: 048
     Dates: start: 20130502
  13. WYPAX [Concomitant]
     Indication: INSOMNIA
     Route: 048
     Dates: start: 20130512, end: 20130521
  14. MYSLEE [Concomitant]
     Indication: INSOMNIA
     Route: 048
     Dates: start: 20130520, end: 20130521
  15. DIAZOXIDE [Concomitant]
  16. CEFMETAZON [Concomitant]
     Indication: INFECTION
     Dosage: 2 G, UNK
     Dates: start: 20130501, end: 20130506
  17. RINDERON [Concomitant]
     Indication: INSOMNIA
     Dosage: 4 MG, UNK
     Dates: start: 20130516, end: 20130616
  18. ROHYPNOL [Concomitant]
     Indication: INSOMNIA
     Dosage: 1 MG, UNK
     Dates: start: 20130522, end: 20130616
  19. DORMICUM//MIDAZOLAM [Concomitant]
     Indication: INSOMNIA
     Dosage: 10 MG, UNK
     Dates: start: 20130522, end: 20130616

REACTIONS (26)
  - Hepatic encephalopathy [Not Recovered/Not Resolved]
  - Hypoglycaemic coma [Unknown]
  - Supraventricular tachycardia [Unknown]
  - Palpitations [Recovered/Resolved]
  - Cardiac failure [Not Recovered/Not Resolved]
  - Ejection fraction decreased [Unknown]
  - Bacterial translocation [Unknown]
  - Pyrexia [Recovering/Resolving]
  - Malignant neoplasm progression [Not Recovered/Not Resolved]
  - Portal vein thrombosis [Unknown]
  - Interstitial lung disease [Recovered/Resolved]
  - Stomatitis [Recovered/Resolved]
  - Hyperlipidaemia [Unknown]
  - Hypercholesterolaemia [Unknown]
  - Hyperglycaemia [Recovered/Resolved]
  - Glycosylated haemoglobin increased [Recovered/Resolved]
  - Chest discomfort [Unknown]
  - Abdominal discomfort [Unknown]
  - Pain [Unknown]
  - Sense of oppression [Unknown]
  - Discomfort [Unknown]
  - Protein urine [Not Recovered/Not Resolved]
  - Pancreatic neuroendocrine tumour [Not Recovered/Not Resolved]
  - Dizziness [Unknown]
  - Headache [Unknown]
  - Dyspnoea [Unknown]
